FAERS Safety Report 22535990 (Version 1)
Quarter: 2023Q2

REPORT INFORMATION
  Report Type: Spontaneous
  Country: US (occurrence: None)
  Receive Date: 20230606
  Receipt Date: 20230606
  Transmission Date: 20230721
  Serious: Yes (Hospitalization)
  Sender: FDA-Public Use
  Company Number: None

PATIENT
  Sex: Female

DRUGS (18)
  1. RETACRIT [Suspect]
     Active Substance: EPOETIN ALFA-EPBX
     Indication: Chronic kidney disease
     Dosage: 20,000 UNITS QW SQ
     Route: 058
  2. ASPIRIN [Concomitant]
     Active Substance: ASPIRIN
  3. BRIELLYN [Concomitant]
     Active Substance: ETHINYL ESTRADIOL\NORETHINDRONE
  4. CALCIUM [Concomitant]
     Active Substance: CALCIUM
  5. MINERALS\VITAMINS [Concomitant]
     Active Substance: MINERALS\VITAMINS
  6. CLARITIN [Concomitant]
     Active Substance: LORATADINE
  7. DOCUSATE [Concomitant]
     Active Substance: DOCUSATE
  8. FERROUS GLUCONATE [Concomitant]
     Active Substance: FERROUS GLUCONATE
  9. FLONASE [Concomitant]
     Active Substance: FLUTICASONE PROPIONATE
  10. FOLIC ACID [Concomitant]
     Active Substance: FOLIC ACID
  11. FUROSEMIDE [Concomitant]
     Active Substance: FUROSEMIDE
  12. HYDROCHLOROTHIAZIDE [Concomitant]
     Active Substance: HYDROCHLOROTHIAZIDE
  13. IPRATROPIUM [Concomitant]
     Active Substance: IPRATROPIUM
  14. LACTULOSE [Concomitant]
     Active Substance: LACTULOSE
  15. LEVOFLOXACIN [Concomitant]
     Active Substance: LEVOFLOXACIN
  16. METHYLPREDNILOSONE [Concomitant]
  17. PANTROPRAZOLE [Concomitant]
  18. SPIRIVA [Concomitant]
     Active Substance: TIOTROPIUM BROMIDE MONOHYDRATE

REACTIONS (1)
  - Hospitalisation [None]
